FAERS Safety Report 23420951 (Version 1)
Quarter: 2024Q1

REPORT INFORMATION
  Report Type: Spontaneous
  Country: ES (occurrence: ES)
  Receive Date: 20240119
  Receipt Date: 20240119
  Transmission Date: 20240410
  Serious: Yes (Hospitalization)
  Sender: FDA-Public Use
  Company Number: ES-MACLEODS PHARMACEUTICALS US LTD-MAC2024045339

PATIENT

DRUGS (4)
  1. IRBESARTAN [Suspect]
     Active Substance: IRBESARTAN
     Indication: Essential hypertension
     Dosage: 300 MILLIGRAM, QD
     Route: 065
  2. ZOLPIDEM [Concomitant]
     Active Substance: ZOLPIDEM TARTRATE
     Indication: Insomnia
     Dosage: 10 MILLIGRAM, QD
     Route: 065
  3. Tonopan [Concomitant]
     Indication: Migraine
     Dosage: UNK
     Route: 065
  4. DIPYRONE [Concomitant]
     Active Substance: DIPYRONE
     Indication: Migraine
     Dosage: UNK
     Route: 065

REACTIONS (1)
  - Hepatitis cholestatic [Recovering/Resolving]
